FAERS Safety Report 10625998 (Version 2)
Quarter: 2015Q4

REPORT INFORMATION
  Report Type: Spontaneous
  Country: US (occurrence: US)
  Receive Date: 20141204
  Receipt Date: 20151001
  Transmission Date: 20160304
  Serious: Yes (Hospitalization)
  Sender: FDA-Public Use
  Company Number: US-B.I. PHARMACEUTICALS,INC./RIDGEFIELD-2014-BI-58113BP

PATIENT
  Sex: Female
  Weight: 68.04 kg

DRUGS (6)
  1. BISOPORIL [Concomitant]
     Indication: HYPERTENSION
     Dosage: 100 MG
     Route: 048
     Dates: start: 201108
  2. FLECANIDE [Concomitant]
     Active Substance: FLECAINIDE
     Indication: ATRIAL FIBRILLATION
     Dosage: 300 MG
     Route: 048
     Dates: start: 201108
  3. LEVOTHYROXINE. [Concomitant]
     Active Substance: LEVOTHYROXINE
     Indication: HYPOTHYROIDISM
     Dosage: 75 MCG
     Route: 048
  4. LOSARTAN AND HYDROCHLOROTHIAZIDE [Concomitant]
     Active Substance: HYDROCHLOROTHIAZIDE\LOSARTAN POTASSIUM
     Indication: HYPERTENSION
     Dosage: STRENGTH AND DAILY DOSE; 50 MG-12.5 MG
     Route: 048
  5. PRADAXA [Suspect]
     Active Substance: DABIGATRAN ETEXILATE MESYLATE
     Indication: ATRIAL FIBRILLATION
     Dosage: 300 MG
     Route: 048
     Dates: start: 201108
  6. ASPIRIN. [Concomitant]
     Active Substance: ASPIRIN
     Indication: CARDIAC DISORDER
     Dosage: 81 MG
     Route: 048

REACTIONS (2)
  - Arthritis [Recovered/Resolved]
  - Arthritis [Recovered/Resolved]

NARRATIVE: CASE EVENT DATE: 2012
